FAERS Safety Report 7946846-4 (Version None)
Quarter: 2011Q4

REPORT INFORMATION
  Report Type: 
  Country: None (occurrence: None)
  Receive Date: 20111129
  Receipt Date: 20111116
  Transmission Date: 20120403
  Serious: Yes (Other)
  Sender: FDA-Public Use
  Company Number: PHEH2011US009662

PATIENT
  Sex: Male
  Weight: 82.993 kg

DRUGS (27)
  1. KLOR-CON [Concomitant]
     Dosage: 40 MEQ, QD
  2. VORICONAZOLE [Concomitant]
     Dosage: 200 MG, BID
     Route: 048
  3. PREDNISONE TAB [Concomitant]
     Dosage: 15 MG, QD (ALTERNATING WITH 10MG QD)
  4. OMEPRAZOLE [Concomitant]
     Dosage: 20 MG, QD
  5. LIPITOR [Concomitant]
     Dosage: 80 MG, QD
     Route: 048
  6. NEURONTIN [Concomitant]
     Dosage: 900 MG, DAILY
  7. METOPROLOL TARTRATE [Concomitant]
     Dosage: 25 MG, QD
     Route: 048
  8. VITAMIN E [Concomitant]
     Dosage: 400 , QD
  9. AMBIEN [Concomitant]
     Dosage: 10 MG, H.S.
  10. ACYCLOVIR [Concomitant]
     Dosage: 800 MG, BID
     Route: 048
  11. VITAMIN B6 [Concomitant]
     Dosage: 100 MG, BID
     Route: 048
  12. VITAMIN D [Concomitant]
     Dosage: 1000 IU, QD
  13. FOLIC ACID [Concomitant]
     Dosage: 400 UG, QD
  14. FLUOCINONIDE [Concomitant]
     Dosage: 0.05 %, PRN
  15. CALCIUM CITRATE [Concomitant]
     Dosage: 400 MG, TID
     Route: 048
  16. MULTI-VITAMINS [Concomitant]
     Dosage: ONE TABLET DAILY
  17. LASIX [Concomitant]
     Dosage: 40 MG, QD
  18. ANDRODERM [Concomitant]
     Dosage: 2.5 MG, QD
  19. GLEEVEC [Suspect]
     Indication: ACUTE MYELOID LEUKAEMIA
     Dosage: 300 MG, DAILY
     Route: 048
  20. FOSAMAX [Concomitant]
     Dosage: 35 MG, WEEK
     Route: 048
  21. MYCOPHENOLATE MOFETIL [Concomitant]
     Dosage: 500 MG, BID
     Route: 048
  22. TACROLIMUS [Concomitant]
     Dosage: 0.5 MG, QD
     Route: 048
  23. LEXAPRO [Concomitant]
     Dosage: 10 MG, QD
  24. GLEEVEC [Suspect]
     Dosage: UNK
  25. PENICILLIN VK [Concomitant]
     Dosage: 500 MG, BID
     Route: 048
  26. WARFARIN SODIUM [Concomitant]
  27. DILTIAZEM HCL [Concomitant]
     Dosage: 120 MG, QD

REACTIONS (13)
  - SYSTEMIC SCLEROSIS [None]
  - INCREASED TENDENCY TO BRUISE [None]
  - SKIN TIGHTNESS [None]
  - CUSHINGOID [None]
  - FATIGUE [None]
  - CONJUNCTIVAL HAEMORRHAGE [None]
  - URINE ABNORMALITY [None]
  - SKIN DEPIGMENTATION [None]
  - NEUROPATHY PERIPHERAL [None]
  - VITILIGO [None]
  - HYPOAESTHESIA [None]
  - UPPER RESPIRATORY TRACT INFECTION [None]
  - BALANCE DISORDER [None]
